FAERS Safety Report 18747558 (Version 7)
Quarter: 2021Q1

REPORT INFORMATION
  Report Type: Report from Study
  Country: IL (occurrence: IL)
  Receive Date: 20210115
  Receipt Date: 20210319
  Transmission Date: 20210419
  Serious: Yes (Hospitalization)
  Sender: FDA-Public Use
  Company Number: IL-ROCHE-2746959

PATIENT
  Age: 77 Year
  Sex: Female
  Weight: 73.7 kg

DRUGS (17)
  1. MTIG 7192A [Suspect]
     Active Substance: TIRAGOLUMAB
     Indication: HEPATOCELLULAR CARCINOMA
     Dosage: MOS RECENT DOSE ON 15/DEC/2020
     Route: 042
     Dates: start: 20201125
  2. NEXIUM [Concomitant]
     Active Substance: ESOMEPRAZOLE MAGNESIUM
     Indication: GASTRITIS
     Route: 048
     Dates: start: 20201001
  3. AMLODIPINE [Concomitant]
     Active Substance: AMLODIPINE BESYLATE
     Route: 048
     Dates: start: 20210111
  4. LOSARDEX [Concomitant]
     Active Substance: LOSARTAN POTASSIUM
     Route: 048
     Dates: start: 20210113, end: 20210116
  5. PREDNISONE. [Concomitant]
     Active Substance: PREDNISONE
     Dosage: END DATE: 14/JAN/2021
     Route: 048
     Dates: start: 20210113
  6. ALDACTONE [Concomitant]
     Active Substance: SPIRONOLACTONE
     Indication: HYPERTENSION
     Route: 048
     Dates: start: 20201001
  7. LOSARDEX [Concomitant]
     Active Substance: LOSARTAN POTASSIUM
     Indication: HYPERTENSION
     Route: 048
     Dates: start: 202012
  8. ATEZOLIZUMAB. [Suspect]
     Active Substance: ATEZOLIZUMAB
     Indication: HEPATOCELLULAR CARCINOMA
     Dosage: MOS RECENT DOSE ON 15/DEC/2020
     Route: 041
     Dates: start: 20201125
  9. BEVACIZUMAB. [Suspect]
     Active Substance: BEVACIZUMAB
     Indication: HEPATOCELLULAR CARCINOMA
     Dosage: MOS RECENT DOSE ON 15/DEC/2020
     Route: 042
     Dates: start: 20201125
  10. ACAMOL [Concomitant]
     Active Substance: ACETAMINOPHEN
     Indication: PAIN
     Route: 048
  11. FUSID (ISRAEL) [Concomitant]
     Indication: HYPERTENSION
     Route: 048
     Dates: start: 20201214, end: 20201217
  12. FUSID (ISRAEL) [Concomitant]
     Route: 048
     Dates: start: 20201214, end: 20201215
  13. PREDNISONE. [Concomitant]
     Active Substance: PREDNISONE
     Indication: HEPATIC ENZYME INCREASED
     Route: 048
     Dates: start: 20210111, end: 20210112
  14. PREDNISONE. [Concomitant]
     Active Substance: PREDNISONE
     Dosage: START DATE: 15?JAN?2021
     Route: 048
  15. PREDNISONE. [Concomitant]
     Active Substance: PREDNISONE
     Route: 048
     Dates: start: 20210105, end: 20210109
  16. PROPANOLOL [Concomitant]
     Active Substance: PROPRANOLOL HYDROCHLORIDE
     Indication: HYPERTENSION
     Route: 048
     Dates: start: 20150501
  17. CETOMACROGOL [Concomitant]
     Active Substance: COSMETICS
     Indication: LIPOMA
     Route: 061

REACTIONS (1)
  - Encephalopathy [Recovered/Resolved with Sequelae]

NARRATIVE: CASE EVENT DATE: 20210110
